FAERS Safety Report 5610204-8 (Version None)
Quarter: 2008Q1

REPORT INFORMATION
  Report Type: 
  Country: None (occurrence: None)
  Receive Date: 20080131
  Receipt Date: 20080121
  Transmission Date: 20080703
  Serious: Yes (Other)
  Sender: FDA-Public Use
  Company Number: FR-PFIZER INC-2008008305

PATIENT
  Sex: Female

DRUGS (4)
  1. TAHOR [Suspect]
  2. SECTRAL [Concomitant]
  3. KARDEGIC [Concomitant]
  4. LEVONORGESTREL [Concomitant]

REACTIONS (2)
  - AMNIOTIC FLUID VOLUME DECREASED [None]
  - GESTATIONAL DIABETES [None]
